FAERS Safety Report 4567105-6 (Version None)
Quarter: 2005Q1

REPORT INFORMATION
  Report Type: 
  Country: None (occurrence: None)
  Receive Date: 20050126
  Receipt Date: 20050104
  Transmission Date: 20050727
  Serious: Yes (Hospitalization)
  Sender: FDA-Public Use
  Company Number: USA041286830

PATIENT
  Age: 17 Year
  Sex: Male

DRUGS (2)
  1. STRATTERA [Suspect]
     Indication: DISTRACTIBILITY
     Dosage: 50 MG DAY
     Dates: start: 20041018, end: 20041113
  2. NUTROPIN [Concomitant]

REACTIONS (2)
  - HALLUCINATION [None]
  - MENTAL DISORDER [None]
